FAERS Safety Report 16361466 (Version 1)
Quarter: 2019Q3

REPORT INFORMATION
  Report Type: Spontaneous
  Country: US (occurrence: US)
  Receive Date: 20190524
  Receipt Date: 20190524
  Transmission Date: 20191004
  Serious: No
  Sender: FDA-Public Use
  Company Number: None

PATIENT
  Age: 70 Year
  Sex: Male
  Weight: 127.8 kg

DRUGS (1)
  1. AMIODARONE 200MG [Suspect]
     Active Substance: AMIODARONE
     Indication: ARRHYTHMIA
     Dosage: ?          QUANTITY:60 TABLET(S);?
     Route: 048
     Dates: start: 20181101, end: 20190510

REACTIONS (4)
  - Dizziness [None]
  - Ocular hyperaemia [None]
  - Halo vision [None]
  - Skin discolouration [None]

NARRATIVE: CASE EVENT DATE: 20190306
